FAERS Safety Report 7590782-2 (Version None)
Quarter: 2011Q3

REPORT INFORMATION
  Report Type: 
  Country: None (occurrence: None)
  Receive Date: 20110705
  Receipt Date: 20110621
  Transmission Date: 20111222
  Serious: Yes (Hospitalization, Other)
  Sender: FDA-Public Use
  Company Number: PHHY2011US51825

PATIENT
  Sex: Female

DRUGS (5)
  1. CLOZAPINE [Suspect]
     Dates: start: 20091028
  2. CLOZAPINE [Suspect]
     Dosage: 50 MG, QDM
  3. CHEMOTHERAPEUTICS NOS [Concomitant]
  4. INVEGA [Concomitant]
     Indication: PSYCHOTIC DISORDER
     Dosage: 117 MG, Q4W
     Dates: start: 20091028
  5. CLOZAPINE [Suspect]
     Indication: PSYCHOTIC DISORDER
     Dosage: 100 MG, QHS
     Route: 048

REACTIONS (2)
  - CERVIX CARCINOMA [None]
  - LYMPHOCYTE COUNT DECREASED [None]
